FAERS Safety Report 6851795-9 (Version None)
Quarter: 2010Q3

REPORT INFORMATION
  Report Type: 
  Country: None (occurrence: None)
  Receive Date: 20100717
  Receipt Date: 20071026
  Transmission Date: 20110219
  Serious: No
  Sender: FDA-Public Use
  Company Number: US-PFIZER INC-2007092285

PATIENT
  Sex: Female
  Weight: 34 kg

DRUGS (8)
  1. CHANTIX [Suspect]
     Indication: SMOKING CESSATION THERAPY
     Dates: start: 20071025
  2. ACIPHEX [Concomitant]
     Indication: GASTROOESOPHAGEAL REFLUX DISEASE
  3. SYNTHROID [Concomitant]
  4. ZOCOR [Concomitant]
  5. ZETIA [Concomitant]
  6. ACETYLSALICYLIC ACID [Concomitant]
  7. ACTONEL [Concomitant]
  8. VITAMINS [Concomitant]

REACTIONS (1)
  - NAUSEA [None]
